FAERS Safety Report 11254285 (Version 1)
Quarter: 2015Q3

REPORT INFORMATION
  Report Type: Spontaneous
  Country: US (occurrence: None)
  Receive Date: 20150708
  Receipt Date: 20150708
  Transmission Date: 20151125
  Serious: No
  Sender: FDA-Public Use
  Company Number: None

PATIENT
  Age: 71 Year
  Sex: Male
  Weight: 79.38 kg

DRUGS (3)
  1. PAIN MEDS [Concomitant]
     Active Substance: UNSPECIFIED INGREDIENT
  2. BP MEDS [Concomitant]
  3. MYRBETRIQ [Suspect]
     Active Substance: MIRABEGRON
     Indication: BLADDER SPASM
     Dosage: ONE PILL
     Route: 048
     Dates: start: 201506, end: 201506

REACTIONS (3)
  - Drug ineffective [None]
  - Headache [None]
  - Blood pressure increased [None]

NARRATIVE: CASE EVENT DATE: 20150601
